FAERS Safety Report 4443256-1 (Version None)
Quarter: 2004Q3

REPORT INFORMATION
  Report Type: 
  Country: None (occurrence: None)
  Receive Date: 20040728
  Receipt Date: 20040513
  Transmission Date: 20050211
  Serious: No
  Sender: FDA-Public Use
  Company Number: USA040567453

PATIENT
  Age: 38 Year
  Sex: Female
  Weight: 57 kg

DRUGS (3)
  1. STRATTERA [Suspect]
     Indication: ATTENTION DEFICIT/HYPERACTIVITY DISORDER
     Dosage: 10 MG DAY
     Dates: start: 20040511
  2. TRILEPTAL [Concomitant]
  3. LAMICTAL [Concomitant]

REACTIONS (4)
  - ANXIETY [None]
  - BRUXISM [None]
  - SOMNOLENCE [None]
  - TREMOR [None]
